FAERS Safety Report 6704253-6 (Version None)
Quarter: 2010Q2

REPORT INFORMATION
  Report Type: 
  Country: None (occurrence: None)
  Receive Date: 20100430
  Receipt Date: 20091010
  Transmission Date: 20101027
  Serious: No
  Sender: FDA-Public Use
  Company Number: US-TYCO HEALTHCARE/MALLINCKRODT-T200901887

PATIENT
  Sex: Female

DRUGS (4)
  1. ACETAMINOPHEN AND HYDROCODONE BITARTRATE [Suspect]
     Indication: PAIN
     Dosage: UNK
     Route: 048
     Dates: start: 20091009, end: 20091001
  2. LASIX [Concomitant]
     Indication: FLUID RETENTION
     Dosage: UNK
  3. HUMALOG [Concomitant]
     Indication: DIABETES MELLITUS
  4. NOVOLIN                            /00030501/ [Concomitant]
     Indication: DIABETES MELLITUS

REACTIONS (1)
  - HEADACHE [None]
